FAERS Safety Report 8125184-3 (Version None)
Quarter: 2012Q1

REPORT INFORMATION
  Report Type: 
  Country: None (occurrence: None)
  Receive Date: 20120206
  Receipt Date: 20120116
  Transmission Date: 20120608
  Serious: Yes (Other)
  Sender: FDA-Public Use
  Company Number: JPI-P-000459

PATIENT
  Age: 26 Year
  Sex: Female
  Weight: 68 kg

DRUGS (9)
  1. CLOMIPRAMINE HYDROCHLORIDE [Concomitant]
  2. XYREM [Suspect]
     Indication: CATAPLEXY
     Dosage: (UNKNOWN), ORAL, 9 GM (4.5 GM, 2 IN 1 D), ORAL
     Route: 048
     Dates: start: 20050801, end: 20061110
  3. XYREM [Suspect]
     Indication: CATAPLEXY
     Dosage: 9 GM (4.5 GM, 2 IN 1 D), ORAL
     Route: 048
     Dates: start: 20061111, end: 20100927
  4. XYREM [Suspect]
     Indication: CATAPLEXY
     Dosage: 9 GM (4.5 GM, 2 IN 1 D), ORAL
     Route: 048
     Dates: start: 20110802
  5. METHYLPHENIDATE HCL [Concomitant]
  6. DOXYCYCLINE [Concomitant]
  7. XYREM [Suspect]
     Indication: CATAPLEXY
     Dosage: 9 GM (3 GM, 3 IN 1 D), ORAL
     Route: 048
     Dates: start: 20100928
  8. TRETINOIN [Concomitant]
  9. MAZINDOL [Concomitant]

REACTIONS (24)
  - SLEEP PARALYSIS [None]
  - BALANCE DISORDER [None]
  - DISORIENTATION [None]
  - VOMITING [None]
  - POOR QUALITY SLEEP [None]
  - FATIGUE [None]
  - WEIGHT INCREASED [None]
  - VERTIGO [None]
  - HEADACHE [None]
  - CLONUS [None]
  - NAUSEA [None]
  - HYPNAGOGIC HALLUCINATION [None]
  - FALL [None]
  - HYPERHIDROSIS [None]
  - NIGHTMARE [None]
  - SOMNAMBULISM [None]
  - PARAESTHESIA [None]
  - INSOMNIA [None]
  - MALAISE [None]
  - CONFUSIONAL STATE [None]
  - ENURESIS [None]
  - STATUS EPILEPTICUS [None]
  - TACHYCARDIA [None]
  - ASTHENIA [None]
